FAERS Safety Report 9315997 (Version 2)
Quarter: 2013Q3

REPORT INFORMATION
  Report Type: Spontaneous
  Country: US (occurrence: US)
  Receive Date: 20130530
  Receipt Date: 20130709
  Transmission Date: 20140515
  Serious: No
  Sender: FDA-Public Use
  Company Number: US-BIOGENIDEC-2013BI045977

PATIENT
  Age: 42 Year
  Sex: Female

DRUGS (5)
  1. AVONEX [Suspect]
     Indication: MULTIPLE SCLEROSIS
     Route: 030
     Dates: start: 20121115
  2. AVONEX [Suspect]
     Indication: MULTIPLE SCLEROSIS
     Route: 030
     Dates: start: 20121116
  3. DIABETES MEDICATION (NOS) [Concomitant]
     Indication: DIABETES MELLITUS
     Route: 048
     Dates: start: 1998
  4. IBUPROFEN [Concomitant]
     Indication: PREMEDICATION
     Route: 048
     Dates: start: 201211
  5. LANTUS [Concomitant]
     Indication: DIABETES MELLITUS
     Dates: start: 201304

REACTIONS (11)
  - Back pain [Not Recovered/Not Resolved]
  - Central nervous system lesion [Not Recovered/Not Resolved]
  - Hypoaesthesia [Recovered/Resolved]
  - Diabetes mellitus [Recovered/Resolved]
  - Musculoskeletal disorder [Not Recovered/Not Resolved]
  - Irritability [Recovered/Resolved]
  - Visual impairment [Not Recovered/Not Resolved]
  - Pain [Recovered/Resolved]
  - Neck pain [Not Recovered/Not Resolved]
  - Insomnia [Recovered/Resolved]
  - Paraesthesia [Recovered/Resolved]
